FAERS Safety Report 5494060-7 (Version None)
Quarter: 2007Q4

REPORT INFORMATION
  Report Type: 
  Country: None (occurrence: None)
  Receive Date: 20071023
  Receipt Date: 20071011
  Transmission Date: 20080405
  Serious: Yes (Hospitalization)
  Sender: FDA-Public Use
  Company Number: US-PFIZER INC-2007086866

PATIENT
  Sex: Female

DRUGS (4)
  1. DOXORUBICIN HYDROCHLORIDE [Suspect]
     Indication: ANAEMIA OF MALIGNANT DISEASE
  2. PROCRIT [Suspect]
     Indication: ANAEMIA OF MALIGNANT DISEASE
  3. ARANESP [Suspect]
     Indication: ANAEMIA OF MALIGNANT DISEASE
  4. CYCLOPHOSPHAMIDE [Suspect]
     Indication: ANAEMIA OF MALIGNANT DISEASE

REACTIONS (3)
  - DIVERTICULUM [None]
  - GASTRITIS [None]
  - VOMITING [None]
